FAERS Safety Report 4520227-8 (Version None)
Quarter: 2004Q4

REPORT INFORMATION
  Report Type: 
  Country: None (occurrence: None)
  Receive Date: 20041029
  Receipt Date: 20040916
  Transmission Date: 20050328
  Serious: Yes (Disabling, Other)
  Sender: FDA-Public Use
  Company Number: WAES 0409USA01457

PATIENT
  Age: 52 Year
  Sex: Female

DRUGS (2)
  1. EMEND [Suspect]
     Indication: PREMEDICATION
     Dosage: PO
     Route: 048
     Dates: start: 20040902
  2. COMPAZINE [Concomitant]

REACTIONS (3)
  - NAUSEA [None]
  - VOMITING [None]
  - WEIGHT DECREASED [None]
